FAERS Safety Report 9263758 (Version 1)
Quarter: 2013Q2

REPORT INFORMATION
  Report Type: Spontaneous
  Country: GB (occurrence: GB)
  Receive Date: 20130430
  Receipt Date: 20130430
  Transmission Date: 20140414
  Serious: Yes (Other)
  Sender: FDA-Public Use
  Company Number: GB-TEVA-400499ISR

PATIENT
  Age: 61 Year
  Sex: Male

DRUGS (1)
  1. CABERGOLINE [Suspect]
     Indication: PROLACTINOMA
     Route: 048
     Dates: start: 20120701

REACTIONS (1)
  - Blood creatine phosphokinase increased [Not Recovered/Not Resolved]
